FAERS Safety Report 6113676-8 (Version None)
Quarter: 2009Q1

REPORT INFORMATION
  Report Type: 
  Country: None (occurrence: None)
  Receive Date: 20090312
  Receipt Date: 20090312
  Transmission Date: 20090719
  Serious: Yes (Death, Other)
  Sender: FDA-Public Use
  Company Number: PHEH2009US02130

PATIENT
  Sex: Male

DRUGS (1)
  1. CLOZARIL [Suspect]
     Dosage: 125 MG, QD
     Route: 048
     Dates: start: 20070920

REACTIONS (3)
  - DEATH [None]
  - FALL [None]
  - LOSS OF CONSCIOUSNESS [None]
